FAERS Safety Report 8337186 (Version 5)
Quarter: 2013Q4

REPORT INFORMATION
  Report Type: Spontaneous
  Country: DK (occurrence: DK)
  Receive Date: 20120113
  Receipt Date: 20131219
  Transmission Date: 20140711
  Serious: Yes (Hospitalization, Other)
  Sender: FDA-Public Use
  Company Number: DK-PFIZER INC-2012010087

PATIENT
  Age: 60 Year
  Sex: Female

DRUGS (1)
  1. CHAMPIX [Suspect]
     Indication: SMOKING CESSATION THERAPY
     Dosage: 0.5MG AND 1MG
     Dates: start: 20061218, end: 2009

REACTIONS (10)
  - Suicidal ideation [Recovered/Resolved]
  - Hallucination [Recovered/Resolved]
  - Depression [Recovered/Resolved]
  - Anxiety [Recovered/Resolved]
  - Memory impairment [Recovered/Resolved]
  - Cardiac disorder [Not Recovered/Not Resolved]
  - Palpitations [Recovered/Resolved]
  - Arthropathy [Unknown]
  - Dizziness [Recovered/Resolved]
  - Malaise [Recovered/Resolved]
